FAERS Safety Report 19804369 (Version 1)
Quarter: 2021Q3

REPORT INFORMATION
  Report Type: Spontaneous
  Country: US (occurrence: US)
  Receive Date: 20210908
  Receipt Date: 20210908
  Transmission Date: 20211014
  Serious: No
  Sender: FDA-Public Use
  Company Number: US-FARMAPROD-202105-0812

PATIENT
  Sex: Male
  Weight: 79 kg

DRUGS (20)
  1. AZELASTINE?FLUTICASONE [Concomitant]
     Active Substance: AZELASTINE HYDROCHLORIDE\FLUTICASONE PROPIONATE
  2. OFLOXACIN. [Concomitant]
     Active Substance: OFLOXACIN
  3. LOTEMAX [Concomitant]
     Active Substance: LOTEPREDNOL ETABONATE
  4. LATANOPROST. [Concomitant]
     Active Substance: LATANOPROST
  5. TESTOSTERONE. [Concomitant]
     Active Substance: TESTOSTERONE
     Dosage: 1.25?1.62
  6. VALTREX [Concomitant]
     Active Substance: VALACYCLOVIR HYDROCHLORIDE
  7. DORZOLAMIDE [Concomitant]
     Active Substance: DORZOLAMIDE
  8. LOTEMAX [Concomitant]
     Active Substance: LOTEPREDNOL ETABONATE
  9. MULTI?VITAMIN [Concomitant]
     Active Substance: .ALPHA.-TOCOPHEROL ACETATE, DL-\ASCORBIC ACID\CYANOCOBALAMIN\FLUORIDE ION\FOLIC ACID\NIACIN\PYRIDOXINE\RIBOFLAVIN\THIAMINE\VITAMIN A\VITAMIN D
     Dosage: DAILY USE
  10. ELIDEL [Concomitant]
     Active Substance: PIMECROLIMUS
  11. ZYRTEC [Concomitant]
     Active Substance: CETIRIZINE HYDROCHLORIDE
  12. VITAMIN C [Concomitant]
     Active Substance: ASCORBIC ACID
  13. BACITRACIN. [Concomitant]
     Active Substance: BACITRACIN
  14. VITAMIN D?400 [Concomitant]
  15. OXERVATE [Suspect]
     Active Substance: CENEGERMIN-BKBJ
     Route: 047
     Dates: start: 20210420
  16. MOXIFLOXACIN. [Concomitant]
     Active Substance: MOXIFLOXACIN
  17. DOXYCYCLINE HYCLATE. [Concomitant]
     Active Substance: DOXYCYCLINE HYCLATE
  18. BACITRACIN. [Concomitant]
     Active Substance: BACITRACIN
  19. OXERVATE [Suspect]
     Active Substance: CENEGERMIN-BKBJ
     Indication: NEUROTROPHIC KERATOPATHY
     Route: 047
     Dates: start: 20200923, end: 20201118
  20. VALTREX [Concomitant]
     Active Substance: VALACYCLOVIR HYDROCHLORIDE

REACTIONS (2)
  - Photophobia [Unknown]
  - Eye pain [Unknown]
